FAERS Safety Report 5142118-4 (Version None)
Quarter: 2006Q4

REPORT INFORMATION
  Report Type: 
  Country: None (occurrence: None)
  Receive Date: 20061102
  Receipt Date: 20060927
  Transmission Date: 20070319
  Serious: Yes (Hospitalization)
  Sender: FDA-Public Use
  Company Number: ZA-BRISTOL-MYERS SQUIBB COMPANY-13524095

PATIENT
  Age: 80 Year
  Sex: Male
  Weight: 85 kg

DRUGS (7)
  1. IRBESARTAN [Suspect]
     Indication: HYPERTENSION
  2. BLINDED: PLACEBO [Suspect]
     Indication: HYPERTENSION
  3. WARFARIN SODIUM [Suspect]
     Indication: PROPHYLAXIS
     Dates: start: 20031201
  4. DIGOXIN [Concomitant]
  5. DOBUTREX [Concomitant]
  6. DIURETIC [Concomitant]
  7. BETA BLOCKER [Concomitant]

REACTIONS (1)
  - RENAL FAILURE [None]
